FAERS Safety Report 23369261 (Version 2)
Quarter: 2024Q2

REPORT INFORMATION
  Report Type: Spontaneous
  Country: CA (occurrence: CA)
  Receive Date: 20240105
  Receipt Date: 20240606
  Transmission Date: 20240716
  Serious: Yes (Other)
  Sender: FDA-Public Use
  Company Number: None

PATIENT
  Age: 40 Year
  Sex: Male

DRUGS (8)
  1. METHOTREXATE [Suspect]
     Active Substance: METHOTREXATE
     Indication: Prophylaxis against graft versus host disease
     Route: 065
  2. MYCOPHENOLATE MOFETIL [Suspect]
     Active Substance: MYCOPHENOLATE MOFETIL
     Indication: Prophylaxis against graft versus host disease
     Route: 065
  3. TACROLIMUS [Suspect]
     Active Substance: TACROLIMUS
     Indication: Prophylaxis against graft versus host disease
     Route: 065
  4. CYCLOPHOSPHAMIDE [Suspect]
     Active Substance: CYCLOPHOSPHAMIDE
     Indication: Myelodysplastic syndrome
     Route: 065
  5. BUSULFAN [Suspect]
     Active Substance: BUSULFAN
     Indication: Myelodysplastic syndrome
  6. PENTOSTATIN [Suspect]
     Active Substance: PENTOSTATIN
     Indication: Prophylaxis against graft versus host disease
     Route: 065
  7. SIROLIMUS [Suspect]
     Active Substance: SIROLIMUS
     Indication: Prophylaxis against graft versus host disease
     Route: 065
  8. TACROLIMUS [Suspect]
     Active Substance: TACROLIMUS
     Indication: Prophylaxis against graft versus host disease
     Route: 065

REACTIONS (6)
  - Thrombotic microangiopathy [Unknown]
  - Renal tubular injury [Unknown]
  - Acute graft versus host disease [Unknown]
  - Chronic graft versus host disease oral [Unknown]
  - Chronic kidney disease [Unknown]
  - Drug ineffective [Unknown]
